FAERS Safety Report 15069764 (Version 1)
Quarter: 2018Q2

REPORT INFORMATION
  Report Type: Report from Study
  Country: US (occurrence: US)
  Receive Date: 20180626
  Receipt Date: 20180626
  Transmission Date: 20180711
  Serious: No
  Sender: FDA-Public Use
  Company Number: US-AMGEN-USASP2014002239

PATIENT
  Age: 57 Year
  Sex: Male

DRUGS (12)
  1. ZOMETA [Concomitant]
     Active Substance: ZOLEDRONIC ACID
     Dosage: 4 MG, 1 IN 1 AS REQUIRED
     Route: 042
  2. TYLENOL [Concomitant]
     Active Substance: ACETAMINOPHEN
     Dosage: 1000 MG, 1 IN 1 CYCLICAL
     Route: 048
  3. ZANTAC [Concomitant]
     Active Substance: RANITIDINE HYDROCHLORIDE
     Dosage: 50 MG, 1 IN 1 CYCLICAL
     Route: 040
  4. CARBOPLATIN. [Concomitant]
     Active Substance: CARBOPLATIN
     Dosage: 882 MG, 1 IN 1 CYCLICAL
     Route: 042
  5. NEULASTA [Suspect]
     Active Substance: PEGFILGRASTIM
     Indication: NON-SMALL CELL LUNG CANCER METASTATIC
     Dosage: 6 MG, 1 IN 1 AS REQUIRED
     Route: 058
     Dates: start: 20121213
  6. AVASTIN [Suspect]
     Active Substance: BEVACIZUMAB
     Indication: NON-SMALL CELL LUNG CANCER METASTATIC
     Dosage: 1609 MG, (15 MG/KG, 1 IN 1 CYCLICAL)
     Route: 042
     Dates: start: 20121212
  7. BENADRYL [Concomitant]
     Active Substance: DIPHENHYDRAMINE HYDROCHLORIDE
     Dosage: 50 MG, 1 IN 1 CYCLICAL
     Route: 040
  8. PACLITAXEL. [Concomitant]
     Active Substance: PACLITAXEL
     Dosage: 458 MG, (200 MG/M2, 1 IN 1 CYCLICAL
     Route: 042
  9. ATIVAN [Concomitant]
     Active Substance: LORAZEPAM
     Dosage: 1 MG, UNK
     Route: 040
  10. ALOXI [Concomitant]
     Active Substance: PALONOSETRON HYDROCHLORIDE
     Dosage: 0.25 MG, 1 IN 1 CYCLICAL
     Route: 040
  11. DECADRON [Concomitant]
     Active Substance: DEXAMETHASONE
     Dosage: 20 MG, 1 IN 1 CYCLICAL
     Route: 040
  12. NACL [Concomitant]
     Active Substance: SODIUM CHLORIDE
     Dosage: NACL .9 % (100 ML), UNK
     Route: 042

REACTIONS (2)
  - Pain [Unknown]
  - Asthenia [Unknown]
